FAERS Safety Report 5077813-9 (Version None)
Quarter: 2006Q3

REPORT INFORMATION
  Report Type: 
  Country: None (occurrence: None)
  Receive Date: 20060803
  Receipt Date: 20060725
  Transmission Date: 20061208
  Serious: Yes (Other)
  Sender: FDA-Public Use
  Company Number: 200610198

PATIENT
  Sex: 0

DRUGS (1)
  1. RHOPHYLAC [Suspect]
     Dates: start: 20060216, end: 20060216

REACTIONS (5)
  - COOMBS DIRECT TEST POSITIVE [None]
  - DRUG EXPOSURE DURING PREGNANCY [None]
  - HAEMATOCRIT DECREASED [None]
  - HYPERBILIRUBINAEMIA NEONATAL [None]
  - NEONATAL DISORDER [None]
